FAERS Safety Report 23558893 (Version 1)
Quarter: 2024Q1

REPORT INFORMATION
  Report Type: Spontaneous
  Country: US (occurrence: None)
  Receive Date: 20240223
  Receipt Date: 20240223
  Transmission Date: 20240410
  Serious: Yes (Hospitalization)
  Sender: FDA-Public Use
  Company Number: None

PATIENT
  Sex: Male

DRUGS (1)
  1. BENLYSTA [Suspect]
     Active Substance: BELIMUMAB
     Indication: Glomerular vascular disorder
     Dosage: FREQUENCY : WEEKLY;?
     Route: 058
     Dates: start: 20240109

REACTIONS (1)
  - Hospitalisation [None]
